FAERS Safety Report 21760484 (Version 1)
Quarter: 2022Q4

REPORT INFORMATION
  Report Type: Report from Study
  Country: IE (occurrence: IE)
  Receive Date: 20221221
  Receipt Date: 20221221
  Transmission Date: 20230112
  Serious: Yes (Hospitalization)
  Sender: FDA-Public Use
  Company Number: IE-002147023-NVSC2022IE252957

PATIENT
  Age: 55 Year
  Sex: Female

DRUGS (1)
  1. RIBOCICLIB [Suspect]
     Active Substance: RIBOCICLIB
     Indication: Breast cancer metastatic
     Dosage: 600 MG
     Route: 048

REACTIONS (10)
  - Cardiac disorder [Unknown]
  - Insomnia [Unknown]
  - Chest discomfort [Unknown]
  - Hypotension [Unknown]
  - Limb discomfort [Unknown]
  - Headache [Unknown]
  - Nausea [Unknown]
  - Constipation [Unknown]
  - Pruritus [Unknown]
  - Dyspepsia [Unknown]
